FAERS Safety Report 16039480 (Version 1)
Quarter: 2019Q1

REPORT INFORMATION
  Report Type: Report from Study
  Country: DE (occurrence: DE)
  Receive Date: 20190306
  Receipt Date: 20190306
  Transmission Date: 20190418
  Serious: Yes (Hospitalization)
  Sender: FDA-Public Use
  Company Number: DE-ROCHE-2276270

PATIENT
  Age: 54 Year
  Sex: Female
  Weight: 66 kg

DRUGS (6)
  1. PREDNIHEXAL [Concomitant]
     Active Substance: PREDNISOLONE ACETATE
     Route: 048
     Dates: start: 20180917, end: 20181227
  2. ATEZOLIZUMAB. [Suspect]
     Active Substance: ATEZOLIZUMAB
     Indication: NON-SMALL CELL LUNG CANCER
     Route: 042
     Dates: start: 20180724, end: 20190117
  3. PREDNIHEXAL [Concomitant]
     Active Substance: PREDNISOLONE ACETATE
     Route: 048
     Dates: start: 20181228
  4. PREDNIHEXAL [Concomitant]
     Active Substance: PREDNISOLONE ACETATE
     Indication: PAIN
     Route: 048
     Dates: start: 20180828, end: 20180916
  5. PARACETAMOL [Concomitant]
     Active Substance: ACETAMINOPHEN
     Indication: PAIN
     Route: 048
     Dates: start: 20180903
  6. DENOSUMAB [Concomitant]
     Active Substance: DENOSUMAB
     Route: 058
     Dates: start: 201702

REACTIONS (1)
  - Radiation pneumonitis [Not Recovered/Not Resolved]

NARRATIVE: CASE EVENT DATE: 20190227
